FAERS Safety Report 24885156 (Version 1)
Quarter: 2025Q1

REPORT INFORMATION
  Report Type: Other
  Country: US (occurrence: US)
  Receive Date: 20250124
  Receipt Date: 20250124
  Transmission Date: 20250408
  Serious: No
  Sender: ELITE
  Company Number: US-ELITEPHARMA-2024ELREG00045

PATIENT
  Age: 34 Year
  Sex: Male
  Weight: 140 kg

DRUGS (4)
  1. DEXTROAMPHETAMINE SACCHARATE, AMPHETAMINE ASPARTATE, DEXTROAMPHETAMINE [Suspect]
     Active Substance: AMPHETAMINE ASPARTATE\AMPHETAMINE SULFATE\DEXTROAMPHETAMINE SACCHARATE\DEXTROAMPHETAMINE SULFATE
     Indication: Attention deficit hyperactivity disorder
     Route: 065
     Dates: start: 20240807
  2. Alvogen [Concomitant]
     Indication: Product used for unknown indication
     Route: 065
  3. GUANFACINE [Concomitant]
     Active Substance: GUANFACINE
     Indication: Product used for unknown indication
     Route: 065
  4. FAMOTIDINE [Concomitant]
     Active Substance: FAMOTIDINE
     Indication: Product used for unknown indication
     Dosage: ONCE NIGHT
     Route: 065

REACTIONS (5)
  - Anxiety [Not Recovered/Not Resolved]
  - Brain fog [Not Recovered/Not Resolved]
  - Product taste abnormal [Unknown]
  - Product substitution issue [Unknown]
  - Drug ineffective [Unknown]
